FAERS Safety Report 7486605-2 (Version None)
Quarter: 2011Q2

REPORT INFORMATION
  Report Type: 
  Country: None (occurrence: None)
  Receive Date: 20110517
  Receipt Date: 20101019
  Transmission Date: 20111010
  Serious: No
  Sender: FDA-Public Use
  Company Number: US-NOVEN-ALL1-2010-05143

PATIENT
  Sex: Female

DRUGS (4)
  1. ZYRTEC [Concomitant]
     Dosage: 10 MG, AS REQ'D
     Route: 048
     Dates: start: 20080101
  2. FERROUS                            /00023501/ [Concomitant]
     Dosage: UNK, 1X/DAY:QD
     Route: 048
     Dates: start: 20090101
  3. RHINOCORT [Concomitant]
     Dosage: 32 UG, AS REQ'D
     Route: 045
  4. DAYTRANA [Suspect]
     Dosage: UNK MG, UNKNOWN, OF 30 MG PATCH
     Route: 062
     Dates: start: 20100817, end: 20100817

REACTIONS (4)
  - FEELING ABNORMAL [None]
  - ACCIDENTAL EXPOSURE [None]
  - PALPITATIONS [None]
  - INITIAL INSOMNIA [None]
